FAERS Safety Report 9133034 (Version 1)
Quarter: 2013Q1

REPORT INFORMATION
  Report Type: Spontaneous
  Country: CH (occurrence: CH)
  Receive Date: 20130116
  Receipt Date: 20130116
  Transmission Date: 20140127
  Serious: Yes (Hospitalization)
  Sender: FDA-Public Use
  Company Number: PHHY2012CH123686

PATIENT
  Age: 49 Year
  Sex: Female

DRUGS (20)
  1. CALCIMAGON D3 [Concomitant]
     Dosage: 500 MG, BID
  2. SANDIMMUN [Suspect]
     Dosage: 75 MG, BID
     Dates: end: 200707
  3. SANDIMMUN [Suspect]
     Dosage: 75 MG, BID
     Dates: start: 200803
  4. PREDNISOLONE [Suspect]
     Dosage: 5-40 MG, PER DAY
     Dates: start: 2000
  5. MABTHERA [Suspect]
     Indication: SYSTEMIC LUPUS ERYTHEMATOSUS
     Dosage: 650 MG, ONCE/SINGLE
     Dates: start: 20070806
  6. MABTHERA [Suspect]
     Dosage: 650 MG, ONCE/SINGLE
     Dates: start: 20070815
  7. MABTHERA [Suspect]
     Dosage: 500 MG, ONCE/SINGLE
     Dates: start: 20070822
  8. MABTHERA [Suspect]
     Dosage: 500 MG, ONCE/SINGLE
     Dates: start: 20070827
  9. MABTHERA [Suspect]
     Dosage: 1000 MG, ONCE/SINGLE
     Dates: start: 20080401
  10. MABTHERA [Suspect]
     Dosage: 1000 MG, ONCE/SINGLE
     Dates: start: 20081125
  11. MABTHERA [Suspect]
     Dosage: 1000 MG, ONCE/SINGLE
     Dates: start: 20090831
  12. IMUREK [Suspect]
     Dosage: 100 MG, PER DAY
     Dates: start: 200707, end: 200802
  13. PLAQUENIL [Concomitant]
     Indication: SYSTEMIC LUPUS ERYTHEMATOSUS
     Dosage: 100-400 MG, PER DAY
     Dates: start: 2000
  14. ACTONEL [Concomitant]
     Dosage: 35 MG, QW
  15. NEXIUM//ESOMEPRAZOLE SODIUM [Concomitant]
     Dosage: 20 MG, PER DAY
  16. NEXIUM//ESOMEPRAZOLE SODIUM [Concomitant]
     Dosage: 40 MG, PER DAY
  17. SINTROM [Concomitant]
     Dates: start: 2009
  18. MARCOUMAR [Concomitant]
  19. ENALAPRIL [Concomitant]
     Dosage: 2.5 MG, BID
  20. ESIDREX [Concomitant]
     Dosage: 25 MG, PER DAY

REACTIONS (14)
  - Systemic lupus erythematosus [Unknown]
  - Epistaxis [Unknown]
  - Pneumocystis jirovecii pneumonia [Unknown]
  - Headache [Unknown]
  - Thrombocytopenia [Unknown]
  - Fatigue [Unknown]
  - Chest pain [Unknown]
  - Pyrexia [Unknown]
  - Cough [Unknown]
  - Sputum discoloured [Unknown]
  - General physical health deterioration [Unknown]
  - Pneumonia staphylococcal [Unknown]
  - Bronchopneumonia [Unknown]
  - Sputum purulent [Unknown]
